FAERS Safety Report 4610509-3 (Version None)
Quarter: 2005Q2

REPORT INFORMATION
  Report Type: 
  Country: None (occurrence: None)
  Receive Date: 20050301
  Receipt Date: 20041209
  Transmission Date: 20051028
  Serious: No
  Sender: FDA-Public Use
  Company Number: WAES 0412USA01191

PATIENT
  Sex: Female

DRUGS (7)
  1. ZETIA [Suspect]
     Indication: HYPERCHOLESTEROLAEMIA
     Dosage: 10 MG/DAILY/PO
     Route: 048
     Dates: start: 20040901
  2. HUMIBID [Concomitant]
  3. LOTENSIN [Concomitant]
  4. SYDOLIL [Concomitant]
  5. XANAX [Concomitant]
  6. FUROSEMIDE [Concomitant]
  7. POTASSIUM (UNSPECIFIED) [Concomitant]

REACTIONS (4)
  - ASTHENIA [None]
  - DIFFICULTY IN WALKING [None]
  - LIMB DISCOMFORT [None]
  - NEUROPATHY [None]
